FAERS Safety Report 9188362 (Version 1)
Quarter: 2013Q1

REPORT INFORMATION
  Report Type: Spontaneous
  Country: US (occurrence: US)
  Receive Date: 20130325
  Receipt Date: 20130325
  Transmission Date: 20140127
  Serious: Yes (Other)
  Sender: FDA-Public Use
  Company Number: US-JNJFOC-20130309909

PATIENT
  Age: 75 Year
  Sex: Male
  Weight: 126.1 kg

DRUGS (2)
  1. TYLENOL [Suspect]
     Indication: NASOPHARYNGITIS
     Dosage: 3 TO 3 1/2 DOSES EVERY 2 HOURS
     Route: 048
     Dates: start: 20130312
  2. UNKNOWN MEDICATION [Concomitant]

REACTIONS (4)
  - Intentional overdose [Unknown]
  - Condition aggravated [Unknown]
  - Drug ineffective [Unknown]
  - Anger [None]
